FAERS Safety Report 19190639 (Version 3)
Quarter: 2021Q2

REPORT INFORMATION
  Report Type: Spontaneous
  Country: JP (occurrence: JP)
  Receive Date: 20210428
  Receipt Date: 20210528
  Transmission Date: 20210717
  Serious: Yes (Hospitalization, Other)
  Sender: FDA-Public Use
  Company Number: JP-GUERBET-JP-20210055

PATIENT
  Age: 66 Year
  Sex: Male

DRUGS (4)
  1. LIPIODOL [Suspect]
     Active Substance: ETHIODIZED OIL
     Indication: SCLEROTHERAPY
     Route: 042
     Dates: start: 202006, end: 202006
  2. LIPIODOL [Suspect]
     Active Substance: ETHIODIZED OIL
     Indication: THROMBOSIS
  3. HISTOACRYL [Suspect]
     Active Substance: ENBUCRILATE
     Indication: SCLEROTHERAPY
     Route: 042
     Dates: start: 202006, end: 202006
  4. HISTOACRYL [Suspect]
     Active Substance: ENBUCRILATE
     Indication: THROMBOSIS

REACTIONS (2)
  - Ileus [Recovered/Resolved]
  - Ulcer [Recovered/Resolved]
